FAERS Safety Report 16650325 (Version 2)
Quarter: 2019Q3

REPORT INFORMATION
  Report Type: Spontaneous
  Country: AU (occurrence: AU)
  Receive Date: 20190731
  Receipt Date: 20190802
  Transmission Date: 20191004
  Serious: Yes (Hospitalization, Other)
  Sender: FDA-Public Use
  Company Number: AU-TEVA-2019-AU-1086064

PATIENT
  Age: 41 Year
  Sex: Female

DRUGS (4)
  1. VANCOMYCIN [Suspect]
     Active Substance: VANCOMYCIN
     Indication: NEUTROPENIC SEPSIS
     Dosage: 1.5 G, EVERY 12 HOURS FOR 3 DOSES
     Route: 065
  2. RITUXIMAB. [Suspect]
     Active Substance: RITUXIMAB
     Indication: B-CELL LYMPHOMA
     Route: 065
  3. BENDAMUSTINE HYDROCHLORIDE. [Suspect]
     Active Substance: BENDAMUSTINE HYDROCHLORIDE
     Indication: B-CELL LYMPHOMA
     Route: 042
  4. GENTAMICIN. [Suspect]
     Active Substance: GENTAMICIN
     Indication: NEUTROPENIC SEPSIS
     Route: 065

REACTIONS (5)
  - Sepsis [Recovered/Resolved]
  - Prescribed underdose [Unknown]
  - Deafness neurosensory [Recovering/Resolving]
  - Neutropenic sepsis [Recovered/Resolved]
  - Product use in unapproved indication [Unknown]
